FAERS Safety Report 11126831 (Version 2)
Quarter: 2015Q3

REPORT INFORMATION
  Report Type: Spontaneous
  Country: AR (occurrence: AR)
  Receive Date: 20150520
  Receipt Date: 20150724
  Transmission Date: 20151125
  Serious: Yes (Hospitalization, Other)
  Sender: FDA-Public Use
  Company Number: AR-AMGEN-ARGSP2015048399

PATIENT
  Age: 82 Year
  Sex: Female

DRUGS (5)
  1. LOTRIAL                            /00574902/ [Concomitant]
     Dosage: UNK
  2. TAFIROL                            /00020001/ [Concomitant]
     Dosage: UNK
  3. GASTEC                             /00622101/ [Concomitant]
     Dosage: UNK
  4. ENBREL [Suspect]
     Active Substance: ETANERCEPT
     Indication: RHEUMATOID ARTHRITIS
     Dosage: 50 MG, EVERY 15 DAYS
     Route: 065
     Dates: start: 20040826
  5. ASPIRINETAS [Concomitant]
     Active Substance: ASPIRIN
     Dosage: UNK

REACTIONS (5)
  - Wheelchair user [Unknown]
  - Dehydration [Recovered/Resolved]
  - Bone fissure [Not Recovered/Not Resolved]
  - Malaise [Recovered/Resolved]
  - Bedridden [Not Recovered/Not Resolved]

NARRATIVE: CASE EVENT DATE: 2008
